FAERS Safety Report 19547091 (Version 1)
Quarter: 2021Q3

REPORT INFORMATION
  Report Type: Spontaneous
  Country: JP (occurrence: JP)
  Receive Date: 20210715
  Receipt Date: 20210715
  Transmission Date: 20211014
  Serious: Yes (Hospitalization)
  Sender: FDA-Public Use
  Company Number: JP-B.I. PHARMACEUTICALS,INC./RIDGEFIELD-2021-BI-114370

PATIENT
  Age: 38 Year
  Sex: Female

DRUGS (1)
  1. MICARDIS [Suspect]
     Active Substance: TELMISARTAN
     Indication: SUICIDE ATTEMPT
     Route: 048
     Dates: start: 20200629, end: 20200629

REACTIONS (4)
  - Prescription drug used without a prescription [Recovered/Resolved]
  - Overdose [Unknown]
  - Intentional overdose [Recovered/Resolved]
  - Asthenia [Recovered/Resolved]

NARRATIVE: CASE EVENT DATE: 20200629
